FAERS Safety Report 6930289-6 (Version None)
Quarter: 2010Q3

REPORT INFORMATION
  Report Type: 
  Country: None (occurrence: None)
  Receive Date: 20100818
  Receipt Date: 20100813
  Transmission Date: 20110219
  Serious: Yes (Life-Threatening, Hospitalization)
  Sender: FDA-Public Use
  Company Number: US-ROCHE-707730

PATIENT
  Sex: Male
  Weight: 80.8 kg

DRUGS (9)
  1. BLINDED BEVACIZUMAB [Suspect]
     Indication: GLIOBLASTOMA MULTIFORME
     Dosage: 10 MG/KG OF BODY WEIGHT OVER 30-90 MIN BEGINING OF WEEK 2,ON DAYS 1 AND 15. LAST DOSE ; 12 APR 2010
     Route: 042
     Dates: start: 20100329
  2. BLINDED BEVACIZUMAB [Suspect]
     Dosage: LAST DOSE PRIOR TO SAE 14 JULY 2010, TOTAL DOSE ADMINISTERED
     Route: 042
     Dates: start: 20100714
  3. TEMOZOLOMIDE [Suspect]
     Indication: GLIOBLASTOMA MULTIFORME
     Dosage: FREQUENCY :QD, 150-200 MG/M2 ON DAY 1-5, THERAPY HELD
     Route: 048
     Dates: start: 20100329, end: 20100620
  4. DECADRON [Suspect]
     Indication: PRODUCT USED FOR UNKNOWN INDICATION
     Route: 065
  5. KEPPRA [Concomitant]
  6. ASPIRIN [Concomitant]
  7. NEXIUM [Concomitant]
  8. OXYCODONE [Concomitant]
  9. PLAVIX [Concomitant]

REACTIONS (4)
  - CELLULITIS [None]
  - CONFUSIONAL STATE [None]
  - CONVULSION [None]
  - SEPSIS [None]
